FAERS Safety Report 19604304 (Version 2)
Quarter: 2021Q3

REPORT INFORMATION
  Report Type: Spontaneous
  Country: GB (occurrence: GB)
  Receive Date: 20210723
  Receipt Date: 20210902
  Transmission Date: 20211014
  Serious: Yes (Other)
  Sender: FDA-Public Use
  Company Number: GB-MYLANLABS-2021M1011732

PATIENT
  Age: 38 Year
  Sex: Female

DRUGS (1)
  1. CLOZARIL [Suspect]
     Active Substance: CLOZAPINE
     Indication: SCHIZOPHRENIA
     Dosage: UNK
     Route: 048
     Dates: start: 20130815, end: 20210716

REACTIONS (8)
  - Antipsychotic drug level increased [Unknown]
  - Product dose omission issue [Unknown]
  - Vomiting [Unknown]
  - Platelet count increased [Unknown]
  - Eosinophil count decreased [Unknown]
  - Thrombocytopenia [Unknown]
  - Mean cell haemoglobin increased [Unknown]
  - Gastroenteritis [Unknown]

NARRATIVE: CASE EVENT DATE: 20210218
